FAERS Safety Report 5730751-8 (Version None)
Quarter: 2008Q2

REPORT INFORMATION
  Report Type: 
  Country: None (occurrence: None)
  Receive Date: 20080507
  Receipt Date: 20080425
  Transmission Date: 20081010
  Serious: Yes (Other)
  Sender: FDA-Public Use
  Company Number: BR-PFIZER INC-2007079566

PATIENT
  Sex: Male
  Weight: 86 kg

DRUGS (2)
  1. CHANTIX [Suspect]
     Indication: SMOKING CESSATION THERAPY
     Route: 048
     Dates: start: 20070801, end: 20070801
  2. VIBRAMICINA [Concomitant]
     Route: 048

REACTIONS (1)
  - TYMPANIC MEMBRANE PERFORATION [None]
